FAERS Safety Report 25932740 (Version 1)
Quarter: 2025Q4

REPORT INFORMATION
  Report Type: Spontaneous
  Country: US (occurrence: US)
  Receive Date: 20251017
  Receipt Date: 20251017
  Transmission Date: 20260118
  Serious: No
  Sender: Kenvue
  Company Number: US-KENVUE-20250915800

PATIENT
  Sex: Male

DRUGS (3)
  1. TYLENOL [Suspect]
     Active Substance: ACETAMINOPHEN
     Indication: Headache
     Route: 064
  2. TYLENOL [Suspect]
     Active Substance: ACETAMINOPHEN
     Indication: Sciatica
  3. TYLENOL [Suspect]
     Active Substance: ACETAMINOPHEN
     Indication: Back pain

REACTIONS (2)
  - Attention deficit hyperactivity disorder [Unknown]
  - Foetal exposure during pregnancy [Unknown]
